FAERS Safety Report 20960334 (Version 1)
Quarter: 2022Q2

REPORT INFORMATION
  Report Type: Other
  Country: US (occurrence: None)
  Receive Date: 20220615
  Receipt Date: 20220615
  Transmission Date: 20220721
  Serious: No
  Sender: FDA-Public Use
  Company Number: US-ROCHE-3116420

PATIENT
  Sex: Male

DRUGS (1)
  1. OCREVUS [Suspect]
     Active Substance: OCRELIZUMAB
     Indication: Primary progressive multiple sclerosis
     Dosage: 300 MG DAY 1 AND DAY 15, THEN 600 MG EVERY 6 MONTHS?DOT: 30-NOV-2021, 14-DEC-2021,
     Route: 042
     Dates: start: 2021

REACTIONS (1)
  - COVID-19 [Unknown]
